FAERS Safety Report 25533539 (Version 1)
Quarter: 2025Q3

REPORT INFORMATION
  Report Type: Report from Study
  Country: EU (occurrence: EU)
  Receive Date: 20250709
  Receipt Date: 20250709
  Transmission Date: 20251020
  Serious: Yes (Other)
  Sender: TEVA
  Company Number: EU-TEVA-VS-3348221

PATIENT
  Age: 72 Year
  Sex: Female

DRUGS (4)
  1. TERIPARATIDE [Suspect]
     Active Substance: TERIPARATIDE
     Indication: Osteoporosis
     Route: 065
     Dates: start: 20250220, end: 20250526
  2. Rixathon Perfusion [Concomitant]
     Indication: Rheumatoid arthritis
     Route: 065
  3. CORTISONE [Concomitant]
     Active Substance: CORTISONE
     Indication: Rheumatoid arthritis
     Dosage: 2,5 MG, ONE PER DAY, CONTINUES
     Route: 065
  4. Arava 20 [Concomitant]
     Indication: Rheumatoid arthritis
     Dosage: CONTINUES
     Route: 065

REACTIONS (5)
  - Malaise [Recovered/Resolved]
  - Abdominal pain upper [Recovered/Resolved]
  - Headache [Recovered/Resolved]
  - Vomiting [Recovered/Resolved]
  - Taste disorder [Recovering/Resolving]

NARRATIVE: CASE EVENT DATE: 20250301
